FAERS Safety Report 23230543 (Version 1)
Quarter: 2023Q4

REPORT INFORMATION
  Report Type: Spontaneous
  Country: US (occurrence: None)
  Receive Date: 20231124
  Receipt Date: 20231124
  Transmission Date: 20240110
  Serious: No
  Sender: FDA-Public Use
  Company Number: None

PATIENT
  Sex: Female

DRUGS (1)
  1. PIQRAY [Suspect]
     Active Substance: ALPELISIB
     Dosage: 200MG  ONCE A DAY ORALLY?
     Route: 048
     Dates: start: 202303

REACTIONS (2)
  - Drug ineffective [None]
  - Therapy cessation [None]
